FAERS Safety Report 10032604 (Version 1)
Quarter: 2014Q1

REPORT INFORMATION
  Report Type: Spontaneous
  Country: US (occurrence: US)
  Receive Date: 20140324
  Receipt Date: 20140324
  Transmission Date: 20141002
  Serious: Yes (Other)
  Sender: FDA-Public Use
  Company Number: US-BAYER-2014-043673

PATIENT
  Sex: Female

DRUGS (2)
  1. SKYLA [Suspect]
     Indication: CONTRACEPTION
     Dosage: 14 MCG/24HR, CONT
     Route: 015
     Dates: start: 20130301
  2. SKYLA [Suspect]
     Indication: MENORRHAGIA

REACTIONS (2)
  - Post procedural haemorrhage [None]
  - Device expulsion [Recovered/Resolved]
